FAERS Safety Report 16570592 (Version 2)
Quarter: 2024Q4

REPORT INFORMATION
  Report Type: Spontaneous
  Country: HK (occurrence: HK)
  Receive Date: 20190715
  Receipt Date: 20241223
  Transmission Date: 20250115
  Serious: Yes (Hospitalization, Other)
  Sender: MERCK
  Company Number: HK-009507513-1907HKG004342

PATIENT

DRUGS (1)
  1. KEYTRUDA [Suspect]
     Active Substance: PEMBROLIZUMAB
     Indication: Bladder cancer
     Dosage: RECEIVED 4 CYCLES OF MONOTHERAPY WITH PEMBROLIZUMAB 1L SETTING

REACTIONS (1)
  - Hepatotoxicity [Recovering/Resolving]
